FAERS Safety Report 7123069-2 (Version None)
Quarter: 2010Q4

REPORT INFORMATION
  Report Type: 
  Country: None (occurrence: None)
  Receive Date: 20101125
  Receipt Date: 20101119
  Transmission Date: 20110411
  Serious: Yes (Hospitalization)
  Sender: FDA-Public Use
  Company Number: US-BIOGENIDEC-2008BI026206

PATIENT
  Age: 70 Year
  Sex: Female

DRUGS (4)
  1. AVONEX [Suspect]
     Indication: MULTIPLE SCLEROSIS
     Route: 030
     Dates: start: 19961111, end: 20091101
  2. AVONEX [Suspect]
     Route: 030
     Dates: start: 20100101
  3. FLECAINIDE [Concomitant]
     Indication: CARDIAC DISORDER
  4. ANGIOTENSIN II RECEPTOR BLOCKERS [Concomitant]
     Indication: CARDIAC DISORDER

REACTIONS (4)
  - ATRIAL FIBRILLATION [None]
  - CARDIAC ENZYMES INCREASED [None]
  - INAPPROPRIATE SCHEDULE OF DRUG ADMINISTRATION [None]
  - OSTEOARTHRITIS [None]
